FAERS Safety Report 4896822-3 (Version None)
Quarter: 2006Q1

REPORT INFORMATION
  Report Type: 
  Country: None (occurrence: None)
  Receive Date: 20060126
  Receipt Date: 20060118
  Transmission Date: 20060701
  Serious: Yes (Hospitalization)
  Sender: FDA-Public Use
  Company Number: 200510691BYL

PATIENT
  Age: 65 Year
  Sex: Female
  Weight: 61 kg

DRUGS (7)
  1. ASPIRIN [Suspect]
     Indication: ANGINA PECTORIS
     Dosage: 100 MG, QD, ORAL
     Route: 048
     Dates: start: 20051006, end: 20051101
  2. GASPORT-D (FAMOTIDINE) [Suspect]
     Indication: REFLUX OESOPHAGITIS
     Dosage: 20 MG, BID, ORAL
     Route: 048
     Dates: start: 20051005, end: 20051101
  3. RAMITALATE-L (NIFEDIPINE) [Suspect]
     Indication: HYPERTENSION
     Dosage: 20 MG, BID, ORAL
     Route: 048
     Dates: start: 20051005, end: 20051101
  4. CARDENALIN [Concomitant]
  5. DEPAS [Concomitant]
  6. CALONAL [Concomitant]
  7. PL GRAN [Concomitant]

REACTIONS (2)
  - INTERSTITIAL LUNG DISEASE [None]
  - PHARYNGOLARYNGEAL PAIN [None]
